FAERS Safety Report 8579711-2 (Version None)
Quarter: 2012Q3

REPORT INFORMATION
  Report Type: 
  Country: None (occurrence: None)
  Receive Date: 20120808
  Receipt Date: 20120730
  Transmission Date: 20120928
  Serious: Yes (Other)
  Sender: FDA-Public Use
  Company Number: US-ASTRAZENECA-2012SE53786

PATIENT
  Sex: Female

DRUGS (4)
  1. NEXIUM [Suspect]
     Indication: GASTROOESOPHAGEAL REFLUX DISEASE
     Route: 048
     Dates: start: 20120101
  2. NEXIUM [Suspect]
     Route: 048
  3. NEXIUM [Suspect]
     Indication: HIATUS HERNIA
     Route: 048
     Dates: start: 20120101
  4. NEXIUM [Suspect]
     Route: 048

REACTIONS (6)
  - MITRAL VALVE INCOMPETENCE [None]
  - INTENTIONAL DRUG MISUSE [None]
  - PULMONARY HYPERTENSION [None]
  - FATIGUE [None]
  - ABDOMINAL PAIN [None]
  - CARDIAC VALVE DISEASE [None]
